FAERS Safety Report 5671858-3 (Version None)
Quarter: 2008Q1

REPORT INFORMATION
  Report Type: 
  Country: None (occurrence: None)
  Receive Date: 20080317
  Receipt Date: 20080317
  Transmission Date: 20080703
  Serious: Yes (Other)
  Sender: FDA-Public Use
  Company Number: None

PATIENT
  Age: 49 Year
  Sex: Female
  Weight: 61.2356 kg

DRUGS (1)
  1. CLIMARA [Suspect]
     Indication: HORMONE REPLACEMENT THERAPY
     Dosage: 1 PATCH PER WEEK  1X WEEK  TRANSDERMAL
     Route: 062
     Dates: start: 19990628, end: 20080314

REACTIONS (4)
  - BLOOD OESTROGEN DECREASED [None]
  - DEVICE FAILURE [None]
  - MENOPAUSAL SYMPTOMS [None]
  - PHARMACEUTICAL PRODUCT COMPLAINT [None]
